FAERS Safety Report 12438564 (Version 1)
Quarter: 2016Q2

REPORT INFORMATION
  Report Type: Other
  Country: FR (occurrence: FR)
  Receive Date: 20160606
  Receipt Date: 20160606
  Transmission Date: 20160815
  Serious: Yes (Hospitalization)
  Sender: FDA-Public Use
  Company Number: FR-ASTELLAS-2016US021476

PATIENT
  Age: 95 Year
  Sex: Male

DRUGS (4)
  1. ATROVENT [Suspect]
     Active Substance: IPRATROPIUM BROMIDE
     Indication: PRODUCT USED FOR UNKNOWN INDICATION
     Dosage: 2 DF, TWICE DAILY (MORNING AND NIGHT)
     Route: 045
     Dates: start: 201409
  2. NOZINAN                            /00038601/ [Suspect]
     Active Substance: LEVOMEPROMAZINE
     Indication: ENURESIS
     Dosage: 4 DROPS, ONCE DAILY (AT BED TIME)
     Route: 048
     Dates: end: 20160318
  3. VESICARE [Suspect]
     Active Substance: SOLIFENACIN SUCCINATE
     Indication: URINARY INCONTINENCE
     Route: 048
     Dates: start: 201111, end: 20160318
  4. PAROXETINE. [Suspect]
     Active Substance: PAROXETINE
     Indication: DEPRESSION
     Dosage: 10 MG, ONCE DAILY (AT NIGHT INSTITUTED ONE MONTH PREVIOUSLY)
     Route: 048
     Dates: start: 201602, end: 20160318

REACTIONS (10)
  - Confusional state [Unknown]
  - Aggression [Recovered/Resolved]
  - Orthostatic hypotension [Unknown]
  - Hallucination [Recovered/Resolved]
  - Fall [Unknown]
  - Skin abrasion [Unknown]
  - Abnormal behaviour [Recovered/Resolved]
  - Head injury [Unknown]
  - Tachycardia [Unknown]
  - Haematoma [Unknown]

NARRATIVE: CASE EVENT DATE: 20160310
